FAERS Safety Report 7269426-5 (Version None)
Quarter: 2011Q1

REPORT INFORMATION
  Report Type: 
  Country: None (occurrence: None)
  Receive Date: 20110125
  Receipt Date: 20110114
  Transmission Date: 20110831
  Serious: Yes (Other)
  Sender: FDA-Public Use
  Company Number: VAL_00513_2011

PATIENT
  Age: 34 Year
  Sex: Male

DRUGS (7)
  1. VALPROIC ACID [Concomitant]
  2. AMOXICILLIN AND CLAVULANATE POTASSIUM [Suspect]
     Indication: LYMPHADENITIS
     Dosage: (1 G BID)
  3. CETIRIZINE [Concomitant]
  4. CARBAMAZEPINE [Suspect]
     Indication: CONVULSION
     Dosage: (DF)
  5. PHENOBARBITAL TAB [Concomitant]
  6. AMOXICILLIN [Suspect]
     Indication: DENTAL IMPLANTATION
     Dosage: (2 G. DAILY)
  7. ACETAMINOPHEN [Concomitant]

REACTIONS (10)
  - ALANINE AMINOTRANSFERASE INCREASED [None]
  - BLOOD LACTATE DEHYDROGENASE INCREASED [None]
  - DRUG RASH WITH EOSINOPHILIA AND SYSTEMIC SYMPTOMS [None]
  - ROSEOLOVIRUS TEST POSITIVE [None]
  - SENSITISATION [None]
  - HEPATIC FUNCTION ABNORMAL [None]
  - DRUG HYPERSENSITIVITY [None]
  - DENTAL IMPLANTATION [None]
  - TYPE IV HYPERSENSITIVITY REACTION [None]
  - ASPARTATE AMINOTRANSFERASE INCREASED [None]
